FAERS Safety Report 6083537-1 (Version None)
Quarter: 2009Q1

REPORT INFORMATION
  Report Type: 
  Country: None (occurrence: None)
  Receive Date: 20090219
  Receipt Date: 20090206
  Transmission Date: 20090719
  Serious: Yes (Hospitalization)
  Sender: FDA-Public Use
  Company Number: AU-ROCHE-612796

PATIENT
  Sex: Female
  Weight: 75 kg

DRUGS (4)
  1. CAPECITABINE [Suspect]
     Indication: COLON CANCER
     Dosage: FREQUENCY REPORTEED:B.D
     Route: 048
     Dates: start: 20081209, end: 20090112
  2. DIAZEPAM [Concomitant]
     Indication: ANXIETY
     Route: 048
  3. PARACETAMOL [Concomitant]
     Indication: ABDOMINAL PAIN
     Route: 048
  4. NITRAZEPAM [Concomitant]
     Indication: SEDATION
     Route: 048
     Dates: end: 20090203

REACTIONS (1)
  - FISTULA [None]
